FAERS Safety Report 8239927-1 (Version None)
Quarter: 2012Q1

REPORT INFORMATION
  Report Type: 
  Country: None (occurrence: None)
  Receive Date: 20120328
  Receipt Date: 20120314
  Transmission Date: 20120608
  Serious: Yes (Hospitalization)
  Sender: FDA-Public Use
  Company Number: NZ-FRI-1000029297

PATIENT
  Age: 51 Year
  Sex: Male
  Weight: 75 kg

DRUGS (6)
  1. QUETIAPINE [Suspect]
  2. CITALOPRAM HYDROBROMIDE [Suspect]
  3. METOPROLOL SUCCINATE [Suspect]
  4. AMITRIPTYLINE HCL [Suspect]
     Dosage: }65 CAPSULES
  5. ASPIRIN [Suspect]
  6. QUINAPRIL [Suspect]

REACTIONS (6)
  - POISONING DELIBERATE [None]
  - ELECTROCARDIOGRAM QRS COMPLEX PROLONGED [None]
  - OVERDOSE [None]
  - CONVULSION [None]
  - TACHYCARDIA [None]
  - AGITATION [None]
